FAERS Safety Report 18726257 (Version 2)
Quarter: 2021Q1

REPORT INFORMATION
  Report Type: Spontaneous
  Country: CA (occurrence: CA)
  Receive Date: 20210111
  Receipt Date: 20210210
  Transmission Date: 20210419
  Serious: Yes (Disabling, Other)
  Sender: FDA-Public Use
  Company Number: CA-AMERICAN REGENT INC-2021000023

PATIENT
  Age: 48 Year
  Sex: Female

DRUGS (1)
  1. VENOFER [Suspect]
     Active Substance: IRON SUCROSE
     Indication: PRODUCT USED FOR UNKNOWN INDICATION
     Dosage: UNK
     Route: 042
     Dates: start: 20191114, end: 20191114

REACTIONS (9)
  - Dysarthria [Recovering/Resolving]
  - Infusion related reaction [Recovering/Resolving]
  - Diarrhoea [Recovering/Resolving]
  - Hypotension [Recovering/Resolving]
  - Peripheral coldness [Recovering/Resolving]
  - Syncope [Recovering/Resolving]
  - Injection site nerve damage [Recovering/Resolving]
  - Feeling hot [Recovering/Resolving]
  - Vomiting [Recovering/Resolving]

NARRATIVE: CASE EVENT DATE: 20191114
